FAERS Safety Report 19219908 (Version 5)
Quarter: 2021Q2

REPORT INFORMATION
  Report Type: Report from Study
  Country: CN (occurrence: CN)
  Receive Date: 20210505
  Receipt Date: 20210528
  Transmission Date: 20210717
  Serious: Yes (Hospitalization, Other)
  Sender: FDA-Public Use
  Company Number: CN-B.I. PHARMACEUTICALS,INC./RIDGEFIELD-2021-BI-100235

PATIENT
  Age: 57 Year
  Sex: Male
  Weight: 76.1 kg

DRUGS (10)
  1. LIU WEI DI HUANG [Concomitant]
     Indication: PROPHYLAXIS
     Route: 048
     Dates: start: 2013
  2. METFORMIN HYDROCHLORIDE. [Concomitant]
     Active Substance: METFORMIN HYDROCHLORIDE
     Indication: TYPE 2 DIABETES MELLITUS
     Route: 048
     Dates: start: 2006
  3. PLACEBO [Suspect]
     Active Substance: UNSPECIFIED INGREDIENT
     Indication: INSULIN-REQUIRING TYPE 2 DIABETES MELLITUS
     Route: 048
     Dates: start: 20210210
  4. PANCREATIC KININOGENASE [Concomitant]
     Active Substance: KALLIDINOGENASE
     Indication: DIABETIC RETINOPATHY
     Route: 048
     Dates: start: 201802
  5. LEVOFLOXACIN HYDROCHLORIDE [Concomitant]
     Active Substance: LEVOFLOXACIN HYDROCHLORIDE
     Indication: URETEROLITHIASIS
  6. EUTHYROX [Concomitant]
     Active Substance: LEVOTHYROXINE SODIUM
     Indication: HYPOTHYROIDISM
     Route: 048
     Dates: start: 2013
  7. LEVOFLOXACIN HYDROCHLORIDE [Concomitant]
     Active Substance: LEVOFLOXACIN HYDROCHLORIDE
     Indication: HYDRONEPHROSIS
     Route: 048
     Dates: start: 20210426
  8. LANTUS [Concomitant]
     Active Substance: INSULIN GLARGINE
     Indication: TYPE 2 DIABETES MELLITUS
     Route: 058
     Dates: start: 2018
  9. ROSUVASTATIN CALCIUM. [Concomitant]
     Active Substance: ROSUVASTATIN CALCIUM
     Indication: ARTERIOSCLEROSIS
     Route: 048
     Dates: start: 20210210
  10. BAYASPIRIN [Concomitant]
     Active Substance: ASPIRIN
     Indication: ARTERIOSCLEROSIS
     Route: 048
     Dates: start: 201406

REACTIONS (6)
  - Ureterolithiasis [Recovered/Resolved]
  - Intestinal polyp [Not Recovered/Not Resolved]
  - Rectal neoplasm [Recovered/Resolved]
  - Hydronephrosis [Recovered/Resolved]
  - Diverticulum intestinal [Not Recovered/Not Resolved]
  - Ureteral stent removal [Recovered/Resolved]

NARRATIVE: CASE EVENT DATE: 20210417
